FAERS Safety Report 10175720 (Version 2)
Quarter: 2014Q2

REPORT INFORMATION
  Report Type: Spontaneous
  Country: US (occurrence: US)
  Receive Date: 20140516
  Receipt Date: 20140516
  Transmission Date: 20141212
  Serious: Yes (Other)
  Sender: FDA-Public Use
  Company Number: US-BEH-2012032605

PATIENT
  Age: 79 Year
  Sex: Male
  Weight: 91 kg

DRUGS (8)
  1. ALBUMINAR 25% [Suspect]
     Indication: HYPOTENSION
     Dosage: 25 GM (50 ML) IVPB; RAPID INFUSION; 25% SOLUTION
     Route: 040
     Dates: start: 20120302, end: 20120302
  2. ENALAPRIL [Concomitant]
     Indication: HYPERTENSION
     Route: 048
     Dates: start: 20120228
  3. ENOXAPARIN [Concomitant]
     Indication: PROPHYLAXIS
     Route: 058
     Dates: start: 20120229
  4. TAMSULOSIN [Concomitant]
     Route: 048
     Dates: start: 20120301
  5. PROPOFOL [Concomitant]
  6. PHENYLEPHRINE [Concomitant]
  7. MAGNESIUM SULFATE [Concomitant]
  8. LACTATED RINGER^S [Concomitant]

REACTIONS (4)
  - Anaphylactic reaction [Recovered/Resolved]
  - Rash erythematous [Recovered/Resolved]
  - Swelling [Recovered/Resolved]
  - Off label use [Unknown]
